FAERS Safety Report 6431463-8 (Version None)
Quarter: 2009Q4

REPORT INFORMATION
  Report Type: 
  Country: None (occurrence: None)
  Receive Date: 20091105
  Receipt Date: 20091105
  Transmission Date: 20100525
  Serious: Yes (Hospitalization)
  Sender: FDA-Public Use
  Company Number: None

PATIENT
  Sex: Male
  Weight: 104.3273 kg

DRUGS (4)
  1. CIPROFLOXACIN [Suspect]
     Indication: INFECTION
     Dosage: 500 MG TWICE/DAY
     Dates: start: 20091010
  2. CIPROFLOXACIN [Suspect]
     Indication: INFECTION
     Dosage: 500 MG TWICE/DAY
     Dates: start: 20091012
  3. SULFAMETHONAXOLE [Suspect]
     Indication: CELLULITIS
     Dosage: TWICE/DAY
     Dates: start: 20091010
  4. SULFAMETHONAXOLE [Suspect]
     Indication: CELLULITIS
     Dosage: TWICE/DAY
     Dates: start: 20091012

REACTIONS (1)
  - HEADACHE [None]
